FAERS Safety Report 9731498 (Version 1)
Quarter: 2013Q4

REPORT INFORMATION
  Report Type: Spontaneous
  Country: CN (occurrence: CN)
  Receive Date: 20131205
  Receipt Date: 20131205
  Transmission Date: 20140711
  Serious: Yes (Hospitalization, Other)
  Sender: FDA-Public Use
  Company Number: CN-ACCORD-020581

PATIENT
  Age: 18 Year
  Sex: Female
  Weight: 46 kg

DRUGS (4)
  1. METHYLPREDNISOLONE [Suspect]
     Indication: STEM CELL TRANSPLANT
     Route: 048
  2. CICLOSPORIN A [Interacting]
     Indication: STEM CELL TRANSPLANT
     Route: 048
  3. VORICONAZOLE [Interacting]
     Indication: ANTIFUNGAL PROPHYLAXIS
     Dosage: TABLET VORICONAZOLE (400 MG, Q12H, PO) ON THE FIRST DAY, FOLLOWED BY 200 MG EVERY 12 H ORALLY WAS AD
     Route: 048
  4. MYCOPHENOLATE MOFETIL [Suspect]
     Indication: STEM CELL TRANSPLANT
     Route: 048

REACTIONS (3)
  - Leukoencephalopathy [Recovering/Resolving]
  - Drug interaction [Unknown]
  - Respiratory tract infection [Unknown]
